FAERS Safety Report 5521291-X (Version None)
Quarter: 2007Q4

REPORT INFORMATION
  Report Type: 
  Country: None (occurrence: None)
  Receive Date: 20071119
  Receipt Date: 20071024
  Transmission Date: 20080405
  Serious: No
  Sender: FDA-Public Use
  Company Number: US-BOEHRINGER INGELHEIM PHARMACEUTICALS, INC.-2007-BP-23332BP

PATIENT
  Age: 83 Year
  Sex: Female
  Weight: 95 kg

DRUGS (1)
  1. SPIRIVA [Suspect]
     Dates: end: 20071017

REACTIONS (1)
  - VISION BLURRED [None]
